FAERS Safety Report 6678658-6 (Version None)
Quarter: 2010Q2

REPORT INFORMATION
  Report Type: 
  Country: None (occurrence: None)
  Receive Date: 20100413
  Receipt Date: 20100401
  Transmission Date: 20101027
  Serious: Yes (Other)
  Sender: FDA-Public Use
  Company Number: US-PFIZER INC-2010043199

PATIENT
  Sex: Male
  Weight: 37.007 kg

DRUGS (1)
  1. CHANTIX [Suspect]
     Indication: SMOKING CESSATION THERAPY
     Dosage: 1 MG, 2X/DAY
     Dates: start: 20091202, end: 20100101

REACTIONS (3)
  - ABNORMAL DREAMS [None]
  - AGGRESSION [None]
  - DISTURBANCE IN SOCIAL BEHAVIOUR [None]
